FAERS Safety Report 6749776-9 (Version None)
Quarter: 2010Q2

REPORT INFORMATION
  Report Type: 
  Country: None (occurrence: None)
  Receive Date: 20100601
  Receipt Date: 20100527
  Transmission Date: 20101027
  Serious: Yes (Hospitalization)
  Sender: FDA-Public Use
  Company Number: JP-EISAI INC.-E2020-06379-SPO-JP

PATIENT
  Sex: Female

DRUGS (8)
  1. ARICEPT [Suspect]
     Indication: DEMENTIA ALZHEIMER'S TYPE
     Dosage: UNKNOWN
     Route: 048
  2. MADOPAR [Concomitant]
     Dosage: 1DF X 2
     Route: 048
  3. ASPIRIN [Concomitant]
     Dosage: 1 DF X 1
     Route: 048
  4. PARIET [Concomitant]
     Dosage: 1 DF X 1
     Route: 048
  5. MAGNESIUM OXIDE [Concomitant]
     Dosage: 0.5 G X 1
     Route: 048
  6. REQUIP [Concomitant]
     Dosage: 2 DF X 3
     Route: 048
  7. TANATRIL [Concomitant]
     Dosage: 1 DF X 1
     Route: 048
     Dates: start: 20100407
  8. LASIX [Concomitant]
     Dosage: 1.0 G X 2
     Route: 048
     Dates: start: 20100407

REACTIONS (2)
  - ATRIOVENTRICULAR BLOCK COMPLETE [None]
  - ELECTROCARDIOGRAM QT PROLONGED [None]
